FAERS Safety Report 5017792-3 (Version None)
Quarter: 2006Q2

REPORT INFORMATION
  Report Type: 
  Country: None (occurrence: None)
  Receive Date: 20060530
  Receipt Date: 20050307
  Transmission Date: 20061013
  Serious: Yes (Hospitalization)
  Sender: FDA-Public Use
  Company Number: 2005040732

PATIENT
  Age: 78 Year
  Sex: Female
  Weight: 80 kg

DRUGS (15)
  1. LYRICA [Suspect]
     Indication: NEURALGIA
     Dosage: 150 MG (75 MG, 2 IN 1 D),ORAL
     Route: 048
     Dates: start: 20050216, end: 20050228
  2. FUROSEMIDE [Concomitant]
  3. ISOPHANE INSULIN [Concomitant]
  4. HYDROCHLOROTHIAZIDE [Concomitant]
  5. FERROUS SULFATE TAB [Concomitant]
  6. LANSOPRAZOLE [Concomitant]
  7. RAMIPRIL [Concomitant]
  8. ISOSORBIDE MONONITRATE [Concomitant]
  9. ALL OTHER THEAPEUTIC PRODUCTS (ALL OTHER THERAPEUTIC PRODUCTS) [Concomitant]
  10. ACETAMINOPHEN [Concomitant]
  11. HYDROXYZINE HCL [Concomitant]
  12. TEMAZEPAM [Concomitant]
  13. CALCIUM CARBONATE (CALCIUM CARBONATE) [Concomitant]
  14. POTASSIUM CHLORIDE [Concomitant]
  15. NULYTELY (MACROGOL, POTASSIUM CHLORIDE, SODIUM BICARBONATE, SODIUM CHL [Concomitant]

REACTIONS (1)
  - HYPONATRAEMIA [None]
